FAERS Safety Report 14048532 (Version 10)
Quarter: 2018Q3

REPORT INFORMATION
  Report Type: Spontaneous
  Country: GB (occurrence: GB)
  Receive Date: 20171005
  Receipt Date: 20180709
  Transmission Date: 20181010
  Serious: Yes (Life-Threatening, Disabling, Congenital Anomaly, Other)
  Sender: FDA-Public Use
  Company Number: GB-ABBVIE-17P-167-2120925-00

PATIENT
  Sex: Female

DRUGS (1)
  1. EPILIM [Suspect]
     Active Substance: VALPROATE SODIUM
     Indication: MATERNAL EXPOSURE TIMING UNSPECIFIED
     Route: 064

REACTIONS (19)
  - Cerebral disorder [Unknown]
  - General physical health deterioration [Unknown]
  - Developmental delay [Unknown]
  - Seizure [Unknown]
  - Terminal state [Unknown]
  - Trisomy 21 [Unknown]
  - Aphasia [Unknown]
  - Spina bifida [Unknown]
  - Dysphagia [Unknown]
  - Respiratory disorder [Unknown]
  - Dyspnoea [Unknown]
  - Malaise [Unknown]
  - Scoliosis [Unknown]
  - Brain injury [Unknown]
  - Weight gain poor [Unknown]
  - Brain oedema [Unknown]
  - Limb deformity [Unknown]
  - Foetal exposure during pregnancy [Unknown]
  - Autism spectrum disorder [Unknown]
